FAERS Safety Report 8409680 (Version 2)
Quarter: 2013Q3

REPORT INFORMATION
  Report Type: Report from Study
  Country: MX (occurrence: MX)
  Receive Date: 20120216
  Receipt Date: 20130709
  Transmission Date: 20140515
  Serious: Yes (Other)
  Sender: FDA-Public Use
  Company Number: PHHY2012MX012437

PATIENT
  Age: 84 Year
  Sex: Male

DRUGS (2)
  1. STALEVO [Suspect]
     Indication: PARKINSON^S DISEASE
     Dosage: 1 DF (150MG LEVO/ 37MG CARB/ 200MG ENTA), Q4H
     Route: 048
     Dates: start: 20050101
  2. CO-DIOVAN [Suspect]
     Indication: HYPERTENSION
     Dosage: 2 DF (160MG VALS /12.5 MG HYDR), DAILY
     Route: 048
     Dates: start: 20090101

REACTIONS (2)
  - Fall [Recovered/Resolved]
  - Hip fracture [Recovered/Resolved]
